FAERS Safety Report 24274159 (Version 1)
Quarter: 2024Q3

REPORT INFORMATION
  Report Type: Spontaneous
  Country: US (occurrence: US)
  Receive Date: 20240902
  Receipt Date: 20240902
  Transmission Date: 20241017
  Serious: No
  Sender: NOVARTIS
  Company Number: US-002147023-NVSC2024US174601

PATIENT
  Sex: Male

DRUGS (1)
  1. CLOFAZIMINE [Suspect]
     Active Substance: CLOFAZIMINE
     Indication: Mycobacterium avium complex infection
     Dosage: 50 MG, QD
     Route: 048
     Dates: start: 20190202, end: 20220824

REACTIONS (1)
  - Abdominal discomfort [Recovered/Resolved]
